FAERS Safety Report 8310435-2 (Version None)
Quarter: 2012Q2

REPORT INFORMATION
  Report Type: 
  Country: None (occurrence: None)
  Receive Date: 20120425
  Receipt Date: 20120417
  Transmission Date: 20120825
  Serious: Yes (Other)
  Sender: FDA-Public Use
  Company Number: US-JNJFOC-20120408608

PATIENT
  Age: 88 Year
  Sex: Male

DRUGS (9)
  1. SYMBICORT [Concomitant]
  2. ZOCOR [Concomitant]
  3. XARELTO [Suspect]
     Indication: ATRIAL FIBRILLATION
     Route: 048
  4. SINGULAIR [Concomitant]
  5. PLAVIX [Concomitant]
  6. TERAZOSIN HCL [Concomitant]
  7. FUROSEMIDE [Concomitant]
  8. ASPIRIN [Concomitant]
  9. NIFEDIPINE [Concomitant]

REACTIONS (1)
  - THROMBOPHLEBITIS [None]
